FAERS Safety Report 9493398 (Version 2)
Quarter: 2013Q4

REPORT INFORMATION
  Report Type: Report from Study
  Country: JP (occurrence: JP)
  Receive Date: 20130902
  Receipt Date: 20131119
  Transmission Date: 20140711
  Serious: No
  Sender: FDA-Public Use
  Company Number: PHHY2013JP094698

PATIENT
  Age: 66 Year
  Sex: Female

DRUGS (11)
  1. LEPONEX / CLOZARIL [Suspect]
     Indication: SCHIZOPHRENIA, DISORGANISED TYPE
     Dosage: 12.5 MG, QD
     Route: 048
     Dates: start: 20120426, end: 20120502
  2. LEPONEX / CLOZARIL [Suspect]
     Dosage: 25 MG, QD
     Route: 048
     Dates: start: 20120503, end: 20120613
  3. LEPONEX / CLOZARIL [Suspect]
     Dosage: 12.5 MG, QD
     Route: 048
     Dates: start: 20120725
  4. DIHYDERGOT [Concomitant]
     Dosage: 3 MG, UNK
     Route: 048
  5. SULPIRIDE [Concomitant]
     Indication: SCHIZOPHRENIA, DISORGANISED TYPE
     Dosage: 100 MG, UNK
     Route: 048
     Dates: start: 20120628, end: 20120710
  6. LIMAS [Concomitant]
     Indication: SCHIZOPHRENIA, DISORGANISED TYPE
     Dosage: 600 MG, UNK
     Route: 048
     Dates: start: 20120410, end: 20120626
  7. DEPAKENE [Concomitant]
     Indication: SCHIZOPHRENIA, DISORGANISED TYPE
     Dosage: 600 MG, UNK
     Route: 048
     Dates: end: 20120604
  8. METLIGINE [Concomitant]
     Dosage: 6 MG, UNK
     Route: 048
  9. NELBON [Concomitant]
     Indication: SCHIZOPHRENIA, DISORGANISED TYPE
     Dosage: 10 MG, UNK
     Route: 048
     Dates: end: 20120618
  10. LUNESTA [Concomitant]
     Indication: SCHIZOPHRENIA, DISORGANISED TYPE
     Dosage: 3 MG, UNK
     Route: 048
     Dates: start: 20120425
  11. SENNOSIDE [Concomitant]
     Dosage: 24 MG, UNK
     Route: 048

REACTIONS (5)
  - Decreased appetite [Recovered/Resolved]
  - Haematocrit decreased [Unknown]
  - Blood pressure decreased [Unknown]
  - Blood pressure increased [Unknown]
  - Haemoglobin decreased [Unknown]
